FAERS Safety Report 9722977 (Version 3)
Quarter: 2013Q4

REPORT INFORMATION
  Report Type: Spontaneous
  Country: US (occurrence: None)
  Receive Date: 20131126
  Receipt Date: 20131204
  Transmission Date: 20140711
  Serious: Yes (Other)
  Sender: FDA-Public Use
  Company Number: ADR-2013-02141

PATIENT
  Age: 38 Year
  Sex: Male

DRUGS (1)
  1. BACLOFEN [Suspect]
     Indication: MUSCLE SPASTICITY

REACTIONS (13)
  - Withdrawal syndrome [None]
  - Pruritus [None]
  - Burning sensation [None]
  - Muscle spasticity [None]
  - Confusional state [None]
  - Road traffic accident [None]
  - Device malfunction [None]
  - Incorrect dose administered [None]
  - Device alarm issue [None]
  - Spinal column injury [None]
  - Device battery issue [None]
  - Drug dose omission [None]
  - Spinal column injury [None]
